FAERS Safety Report 9003589 (Version 1)
Quarter: 2013Q1

REPORT INFORMATION
  Report Type: Spontaneous
  Country: US (occurrence: US)
  Receive Date: 20130108
  Receipt Date: 20130108
  Transmission Date: 20140127
  Serious: No
  Sender: FDA-Public Use
  Company Number: US-009507513-1301USA001499

PATIENT
  Sex: Male

DRUGS (2)
  1. CLARITIN LIQUIGELS [Suspect]
     Indication: NASOPHARYNGITIS
     Dosage: 10 MG, ONCE
     Route: 048
     Dates: start: 20121214
  2. CLARITIN LIQUIGELS [Suspect]
     Indication: RHINORRHOEA

REACTIONS (1)
  - Drug effect decreased [Unknown]
